FAERS Safety Report 7980895-5 (Version None)
Quarter: 2011Q4

REPORT INFORMATION
  Report Type: 
  Country: None (occurrence: None)
  Receive Date: 20111215
  Receipt Date: 20111208
  Transmission Date: 20120403
  Serious: Yes (Death, Life-Threatening)
  Sender: FDA-Public Use
  Company Number: SE-AMGEN-SWESP2011065948

PATIENT
  Age: 34 Year
  Sex: Female

DRUGS (2)
  1. ENBREL [Suspect]
     Indication: PRODUCT USED FOR UNKNOWN INDICATION
     Dosage: 50 MG, WEEKLY
     Route: 058
     Dates: start: 19990826
  2. PREDNISOLONE [Concomitant]
     Dosage: UNK

REACTIONS (8)
  - MYOCARDITIS [None]
  - CARDIOPULMONARY FAILURE [None]
  - GRANULOMA [None]
  - PULMONARY GRANULOMA [None]
  - CARDIAC GRANULOMA [None]
  - PULMONARY OEDEMA [None]
  - PERICARDITIS [None]
  - SPLENIC GRANULOMA [None]
